FAERS Safety Report 15312094 (Version 3)
Quarter: 2018Q4

REPORT INFORMATION
  Report Type: Report from Study
  Country: US (occurrence: US)
  Receive Date: 20180823
  Receipt Date: 20181226
  Transmission Date: 20190204
  Serious: Yes (Hospitalization, Other)
  Sender: FDA-Public Use
  Company Number: US-ASTRAZENECA-2015SE42473

PATIENT
  Age: 61 Year
  Sex: Female
  Weight: 59 kg

DRUGS (51)
  1. SYMBICORT [Suspect]
     Active Substance: BUDESONIDE\FORMOTEROL FUMARATE DIHYDRATE
     Indication: CHRONIC OBSTRUCTIVE PULMONARY DISEASE
     Dosage: 160 OF 4.5 MCG. 2 PUFFS TWICE A DAY
     Route: 055
     Dates: start: 2003
  2. CRESTOR [Suspect]
     Active Substance: ROSUVASTATIN CALCIUM
     Indication: MYOCARDIAL INFARCTION
     Route: 048
     Dates: start: 2009
  3. CRESTOR [Suspect]
     Active Substance: ROSUVASTATIN CALCIUM
     Indication: DIABETES MELLITUS
     Route: 048
     Dates: start: 2009
  4. CRESTOR [Suspect]
     Active Substance: ROSUVASTATIN CALCIUM
     Indication: MYOCARDIAL INFARCTION
     Route: 048
     Dates: end: 20150806
  5. CRESTOR [Suspect]
     Active Substance: ROSUVASTATIN CALCIUM
     Indication: VASCULAR GRAFT
     Route: 048
     Dates: end: 20150806
  6. BYSTOLIC [Concomitant]
     Active Substance: NEBIVOLOL HYDROCHLORIDE
  7. VITAMIN D [Concomitant]
     Active Substance: CHOLECALCIFEROL
  8. INCRUSE ELLIPTA [Concomitant]
     Active Substance: UMECLIDINIUM BROMIDE
  9. CRESTOR [Suspect]
     Active Substance: ROSUVASTATIN CALCIUM
     Indication: BLOOD CHOLESTEROL ABNORMAL
     Route: 048
  10. BREO-ELLIPTA INHALER [Concomitant]
     Indication: ASTHMA
     Dosage: 1 PUFF, DAILY
  11. ZYRTEC [Concomitant]
     Active Substance: CETIRIZINE HYDROCHLORIDE
  12. CLONIDINE. [Concomitant]
     Active Substance: CLONIDINE
  13. ISOSORBIDE. [Concomitant]
     Active Substance: ISOSORBIDE
  14. METOPROLOL SUCCINATE. [Suspect]
     Active Substance: METOPROLOL SUCCINATE
     Indication: BLOOD PRESSURE ABNORMAL
     Route: 048
     Dates: start: 2008
  15. CRESTOR [Suspect]
     Active Substance: ROSUVASTATIN CALCIUM
     Indication: DIABETES MELLITUS
     Route: 048
     Dates: start: 2008
  16. CRESTOR [Suspect]
     Active Substance: ROSUVASTATIN CALCIUM
     Indication: BLOOD CHOLESTEROL ABNORMAL
     Route: 048
     Dates: start: 2009
  17. NITROSTAT [Concomitant]
     Active Substance: NITROGLYCERIN
  18. LIPITOR [Suspect]
     Active Substance: ATORVASTATIN CALCIUM
     Route: 065
  19. BRILINTA [Suspect]
     Active Substance: TICAGRELOR
     Indication: STENT PLACEMENT
     Route: 048
     Dates: start: 2014
  20. CRESTOR [Suspect]
     Active Substance: ROSUVASTATIN CALCIUM
     Indication: BLOOD CHOLESTEROL ABNORMAL
     Route: 048
     Dates: end: 20150806
  21. ALBUTEROL SULFATE. [Concomitant]
     Active Substance: ALBUTEROL SULFATE
     Indication: CHRONIC OBSTRUCTIVE PULMONARY DISEASE
     Dosage: NEBULIZER, FOUR TIMES A DAY
     Dates: start: 1980
  22. ALBUTEROL SULFATE. [Concomitant]
     Active Substance: ALBUTEROL SULFATE
     Indication: ASTHMA
     Dosage: RESCUE INHALER AS NEEDED
     Dates: start: 1980
  23. ASPIRIN. [Concomitant]
     Active Substance: ASPIRIN
  24. CLARITIN [Concomitant]
     Active Substance: LORATADINE
  25. CRESTOR [Suspect]
     Active Substance: ROSUVASTATIN CALCIUM
     Indication: MYOCARDIAL INFARCTION
     Route: 048
     Dates: start: 2008
  26. CRESTOR [Suspect]
     Active Substance: ROSUVASTATIN CALCIUM
     Indication: VASCULAR GRAFT
     Route: 048
     Dates: start: 2008
  27. CRESTOR [Suspect]
     Active Substance: ROSUVASTATIN CALCIUM
     Indication: DIABETES MELLITUS
     Route: 048
  28. ALBUTEROL SULFATE. [Concomitant]
     Active Substance: ALBUTEROL SULFATE
     Indication: CHRONIC OBSTRUCTIVE PULMONARY DISEASE
     Dosage: RESCUE INHALER AS NEEDED
     Dates: start: 1980
  29. HUMULIN MPH [Concomitant]
     Indication: DIABETES MELLITUS
     Dosage: 8 UNITS EVERY MORNING AND 10 UNITS EVERY NIGHT
     Route: 058
     Dates: start: 2003
  30. CLONIDINE. [Concomitant]
     Active Substance: CLONIDINE
     Indication: BLOOD PRESSURE ABNORMAL
     Dosage: EITHER 0.07MG OR 0.7MG, TWICE A DAY
     Route: 048
     Dates: start: 2012
  31. FLUTICASONE. [Concomitant]
     Active Substance: FLUTICASONE
     Dosage: 100.0MG UNKNOWN
  32. TYLENOL [Concomitant]
     Active Substance: ACETAMINOPHEN
  33. DILTIAZEM. [Concomitant]
     Active Substance: DILTIAZEM
  34. CRESTOR [Suspect]
     Active Substance: ROSUVASTATIN CALCIUM
     Indication: BLOOD CHOLESTEROL ABNORMAL
     Route: 048
     Dates: start: 2008
  35. CRESTOR [Suspect]
     Active Substance: ROSUVASTATIN CALCIUM
     Indication: VASCULAR GRAFT
     Route: 048
     Dates: start: 2009
  36. BREO-ELLIPTA INHALER [Concomitant]
     Indication: CHRONIC OBSTRUCTIVE PULMONARY DISEASE
     Dosage: 1 PUFF, DAILY
  37. HUMULIN NPH 70/30 [Concomitant]
  38. ZOCOR [Suspect]
     Active Substance: SIMVASTATIN
     Route: 065
  39. PLAVIX [Suspect]
     Active Substance: CLOPIDOGREL BISULFATE
     Route: 065
  40. HYDRALAZINE [Concomitant]
     Active Substance: HYDRALAZINE HYDROCHLORIDE
     Indication: BLOOD PRESSURE ABNORMAL
  41. IRBESARTAN. [Concomitant]
     Active Substance: IRBESARTAN
  42. DILTIAZEM. [Suspect]
     Active Substance: DILTIAZEM
     Dosage: 240.0MG UNKNOWN
     Route: 065
  43. SYMBICORT [Suspect]
     Active Substance: BUDESONIDE\FORMOTEROL FUMARATE DIHYDRATE
     Indication: ASTHMA
     Dosage: 160 OF 4.5 MCG. 2 PUFFS TWICE A DAY
     Route: 055
     Dates: start: 2003
  44. LISINOPRIL. [Suspect]
     Active Substance: LISINOPRIL
     Route: 048
  45. CRESTOR [Suspect]
     Active Substance: ROSUVASTATIN CALCIUM
     Indication: DIABETES MELLITUS
     Route: 048
     Dates: end: 20150806
  46. CRESTOR [Suspect]
     Active Substance: ROSUVASTATIN CALCIUM
     Indication: MYOCARDIAL INFARCTION
     Route: 048
  47. CRESTOR [Suspect]
     Active Substance: ROSUVASTATIN CALCIUM
     Indication: VASCULAR GRAFT
     Route: 048
  48. EFFIENT [Suspect]
     Active Substance: PRASUGREL HYDROCHLORIDE
     Route: 065
  49. ALBUTEROL SULFATE. [Concomitant]
     Active Substance: ALBUTEROL SULFATE
     Indication: ASTHMA
     Dosage: NEBULIZER, FOUR TIMES A DAY
     Dates: start: 1980
  50. HUMULIN INSULIN [Concomitant]
     Active Substance: INSULIN HUMAN
  51. SPIRIVA [Concomitant]
     Active Substance: TIOTROPIUM BROMIDE MONOHYDRATE

REACTIONS (31)
  - Subclavian artery occlusion [Unknown]
  - Cataract [Unknown]
  - Dyspnoea [Recovering/Resolving]
  - Chronic obstructive pulmonary disease [Unknown]
  - Incorrect product administration duration [Unknown]
  - Hypertension [Unknown]
  - Product dose omission [Not Recovered/Not Resolved]
  - Off label use [Unknown]
  - Fluid retention [Unknown]
  - Pain of skin [Unknown]
  - Cardiac disorder [Unknown]
  - Scar [Unknown]
  - Urticaria [Unknown]
  - Peripheral arterial occlusive disease [Unknown]
  - Hypotension [Unknown]
  - Myocardial infarction [Unknown]
  - Blood pressure fluctuation [Unknown]
  - Hypoaesthesia [Unknown]
  - Vitamin D decreased [Unknown]
  - Arterial occlusive disease [Unknown]
  - Respiratory arrest [Unknown]
  - Angina pectoris [Unknown]
  - Food allergy [Unknown]
  - Meniere^s disease [Unknown]
  - Inability to afford medication [Unknown]
  - Blindness [Unknown]
  - Ulcer [Unknown]
  - Abdominal discomfort [Unknown]
  - Drug hypersensitivity [Unknown]
  - Visual impairment [Unknown]
  - Muscle disorder [Unknown]

NARRATIVE: CASE EVENT DATE: 2008
